FAERS Safety Report 10727315 (Version 3)
Quarter: 2015Q2

REPORT INFORMATION
  Report Type: Spontaneous
  Country: US (occurrence: US)
  Receive Date: 20150121
  Receipt Date: 20150506
  Transmission Date: 20150821
  Serious: Yes (Disabling)
  Sender: FDA-Public Use
  Company Number: US-009507513-1204USA04449

PATIENT
  Sex: Male
  Weight: 75.47 kg

DRUGS (1)
  1. PROPECIA [Suspect]
     Active Substance: FINASTERIDE
     Indication: ALOPECIA
     Dosage: 1 MG, QD
     Route: 048
     Dates: start: 20080923, end: 2009

REACTIONS (21)
  - Anxiety [Not Recovered/Not Resolved]
  - Cognitive disorder [Not Recovered/Not Resolved]
  - Depression [Not Recovered/Not Resolved]
  - Erectile dysfunction [Not Recovered/Not Resolved]
  - Adjustment disorder [Unknown]
  - Sleep disorder [Unknown]
  - Sexual dysfunction [Not Recovered/Not Resolved]
  - Affective disorder [Not Recovered/Not Resolved]
  - Helicobacter gastritis [Unknown]
  - Amnesia [Unknown]
  - Ejaculation disorder [Not Recovered/Not Resolved]
  - Ejaculation failure [Not Recovered/Not Resolved]
  - Road traffic accident [Unknown]
  - Neck injury [Unknown]
  - Ligament injury [Unknown]
  - Libido decreased [Not Recovered/Not Resolved]
  - Flushing [Unknown]
  - Musculoskeletal pain [Unknown]
  - Headache [Unknown]
  - Back pain [Unknown]
  - Depressed mood [Unknown]

NARRATIVE: CASE EVENT DATE: 2009
